FAERS Safety Report 6091017-2 (Version None)
Quarter: 2009Q1

REPORT INFORMATION
  Report Type: 
  Country: None (occurrence: None)
  Receive Date: 20090225
  Receipt Date: 20090218
  Transmission Date: 20090719
  Serious: Yes (Death)
  Sender: FDA-Public Use
  Company Number: JP-BAYER-200910524BYL

PATIENT
  Age: 31 Year
  Sex: Female

DRUGS (3)
  1. BETAFERON [Suspect]
     Indication: RELAPSING-REMITTING MULTIPLE SCLEROSIS
     Route: 058
     Dates: start: 20031001, end: 20070627
  2. GASTER D [Concomitant]
     Indication: GASTRIC ULCER
     Dosage: UNIT DOSE: 20 MG
     Route: 048
     Dates: start: 20051116
  3. GASMOTIN [Concomitant]
     Indication: ANOREXIA
     Dosage: UNIT DOSE: 5 MG
     Route: 048
     Dates: start: 20061115

REACTIONS (1)
  - GASTRIC CANCER [None]
